FAERS Safety Report 5734622-2 (Version None)
Quarter: 2008Q2

REPORT INFORMATION
  Report Type: 
  Country: None (occurrence: None)
  Receive Date: 20080512
  Receipt Date: 20080508
  Transmission Date: 20081010
  Serious: Yes (Life-Threatening, Other)
  Sender: FDA-Public Use
  Company Number: PHHY2008JP07401

PATIENT
  Age: 16 Year

DRUGS (1)
  1. SANDOSTATIN [Suspect]
     Indication: DIARRHOEA
     Dosage: 300 UG/DAY
     Route: 058
     Dates: start: 20080401

REACTIONS (3)
  - BRADYCARDIA [None]
  - CARDIAC ARREST [None]
  - SINUS ARRHYTHMIA [None]
